FAERS Safety Report 5873964-7 (Version None)
Quarter: 2008Q3

REPORT INFORMATION
  Report Type: 
  Country: None (occurrence: None)
  Receive Date: 20080908
  Receipt Date: 20080828
  Transmission Date: 20090109
  Serious: No
  Sender: FDA-Public Use
  Company Number: US-MERCK-0808USA04272

PATIENT
  Age: 74 Year
  Sex: Male
  Weight: 127 kg

DRUGS (1)
  1. JANUVIA [Suspect]
     Route: 048
     Dates: start: 20080318, end: 20080424

REACTIONS (2)
  - PAIN [None]
  - UPPER RESPIRATORY TRACT INFECTION [None]
